FAERS Safety Report 12610559 (Version 3)
Quarter: 2016Q3

REPORT INFORMATION
  Report Type: Spontaneous
  Country: HU (occurrence: HU)
  Receive Date: 20160801
  Receipt Date: 20160819
  Transmission Date: 20161109
  Serious: Yes (Death, Hospitalization)
  Sender: FDA-Public Use
  Company Number: HU-PFIZER INC-2016358302

PATIENT
  Age: 55 Year
  Sex: Male

DRUGS (5)
  1. BISOBLOCK [Concomitant]
     Active Substance: BISOPROLOL FUMARATE
     Indication: HYPERTENSION
     Dosage: 5 MG, 1-0-0
     Dates: end: 20160727
  2. FENTANYL TRANSDERMAL SYSTEM [Concomitant]
     Active Substance: FENTANYL
     Indication: ANALGESIC THERAPY
     Dosage: 100 MG, UNK
  3. DOXAZOSIN [Concomitant]
     Active Substance: DOXAZOSIN\DOXAZOSIN MESYLATE
     Indication: HYPERTENSION
     Dosage: 4 MG, 1-0-0
     Dates: end: 20160727
  4. CO PRENESSA [Concomitant]
     Indication: HYPERTENSION
     Dosage: INDAPAMIDE/PERINDOPRIL ERBUMINE: 1.25 MG/4 MG, 1-0-0
     Dates: end: 20160727
  5. INLYTA [Suspect]
     Active Substance: AXITINIB
     Indication: RENAL CANCER
     Dosage: DAILY 2 X 5 MG
     Route: 048
     Dates: start: 20160620, end: 20160727

REACTIONS (9)
  - General physical health deterioration [Not Recovered/Not Resolved]
  - Somnolence [Not Recovered/Not Resolved]
  - Disease progression [Fatal]
  - Confusional state [Not Recovered/Not Resolved]
  - Communication disorder [Not Recovered/Not Resolved]
  - Asthenia [Not Recovered/Not Resolved]
  - Decreased appetite [Not Recovered/Not Resolved]
  - Movement disorder [Not Recovered/Not Resolved]
  - Renal cancer [Fatal]

NARRATIVE: CASE EVENT DATE: 20160718
